FAERS Safety Report 4286305-6 (Version None)
Quarter: 2004Q1

REPORT INFORMATION
  Report Type: 
  Country: None (occurrence: None)
  Receive Date: 20040115
  Receipt Date: 20021219
  Transmission Date: 20041129
  Serious: Yes (Other)
  Sender: FDA-Public Use
  Company Number: NSADSS2002046758

PATIENT
  Age: 64 Year
  Sex: Female
  Weight: 63.9572 kg

DRUGS (1)
  1. DOXIL [Suspect]
     Indication: OVARIAN CANCER
     Dosage: 40 MG/M2, INTRAVENOUS DRIP
     Route: 041
     Dates: start: 20021118

REACTIONS (4)
  - APHASIA [None]
  - DIZZINESS [None]
  - DYSTONIA [None]
  - HYPERSENSITIVITY [None]
